FAERS Safety Report 23073998 (Version 1)
Quarter: 2023Q4

REPORT INFORMATION
  Report Type: Spontaneous
  Country: US (occurrence: None)
  Receive Date: 20231016
  Receipt Date: 20231016
  Transmission Date: 20240109
  Serious: No
  Sender: FDA-Public Use
  Company Number: None

PATIENT
  Age: 67 Year
  Sex: Male
  Weight: 54 kg

DRUGS (1)
  1. DROXIDOPA [Suspect]
     Active Substance: DROXIDOPA

REACTIONS (1)
  - Blood urine present [None]

NARRATIVE: CASE EVENT DATE: 20230801
